FAERS Safety Report 17617255 (Version 11)
Quarter: 2023Q2

REPORT INFORMATION
  Report Type: Report from Study
  Country: DE (occurrence: DE)
  Receive Date: 20200402
  Receipt Date: 20230407
  Transmission Date: 20230721
  Serious: Yes (Death, Other)
  Sender: FDA-Public Use
  Company Number: DE-ABBVIE-20K-062-3348437-00

PATIENT
  Age: 69 Year
  Sex: Male
  Weight: 74 kg

DRUGS (17)
  1. VENETOCLAX [Suspect]
     Active Substance: VENETOCLAX
     Indication: Chronic lymphocytic leukaemia
     Route: 048
     Dates: start: 20200317, end: 20200323
  2. VENETOCLAX [Suspect]
     Active Substance: VENETOCLAX
     Indication: Chronic lymphocytic leukaemia
     Route: 048
     Dates: start: 20200331, end: 20200405
  3. VENETOCLAX [Suspect]
     Active Substance: VENETOCLAX
     Indication: Chronic lymphocytic leukaemia
     Route: 048
     Dates: start: 20200324, end: 20200330
  4. IMBRUVICA [Suspect]
     Active Substance: IBRUTINIB
     Indication: Product used for unknown indication
     Route: 048
  5. LISINOPRIL [Concomitant]
     Active Substance: LISINOPRIL
     Indication: Hypertension
     Route: 048
     Dates: end: 20200405
  6. SULFAMETHOXAZOLE\TRIMETHOPRIM [Concomitant]
     Active Substance: SULFAMETHOXAZOLE\TRIMETHOPRIM
     Indication: Prophylaxis
     Dosage: TIME INTERVAL: 0.33333333 WEEKS
     Route: 048
     Dates: start: 20130531, end: 20200406
  7. SULFAMETHOXAZOLE\TRIMETHOPRIM [Concomitant]
     Active Substance: SULFAMETHOXAZOLE\TRIMETHOPRIM
     Indication: Prophylaxis
     Route: 048
     Dates: start: 20130531, end: 20200406
  8. PANTOPRAZOLE SODIUM [Concomitant]
     Active Substance: PANTOPRAZOLE SODIUM
     Indication: Prophylaxis
     Route: 048
     Dates: start: 20200313, end: 20200405
  9. ALLOPURINOL [Concomitant]
     Active Substance: ALLOPURINOL
     Indication: Chronic lymphocytic leukaemia
     Route: 048
     Dates: start: 20160308, end: 20200405
  10. CYTARABINE [Concomitant]
     Active Substance: CYTARABINE
     Indication: Cerebral disorder
     Route: 043
     Dates: start: 20200316, end: 20200403
  11. DEXAMETHASONE [Concomitant]
     Active Substance: DEXAMETHASONE
     Indication: Cerebral disorder
     Route: 043
     Dates: start: 20200316, end: 20200403
  12. METHOTREXATE [Concomitant]
     Active Substance: METHOTREXATE
     Indication: Cerebral disorder
     Route: 037
     Dates: start: 20200316, end: 20200403
  13. Emser [Concomitant]
     Indication: Laryngitis
     Dosage: TIME INTERVAL: 0.33333333 DAYS
     Route: 055
     Dates: start: 20200317
  14. Emser [Concomitant]
     Indication: Laryngitis
     Route: 055
     Dates: start: 20200317
  15. IMMUNGLOBULIN [Concomitant]
     Indication: Hypogammaglobulinaemia
     Route: 042
     Dates: start: 20140630, end: 20190312
  16. IMMUNGLOBULIN [Concomitant]
     Indication: Hypogammaglobulinaemia
     Route: 042
     Dates: start: 20200211
  17. IMMUNGLOBULIN [Concomitant]
     Indication: Hypogammaglobulinaemia
     Route: 042
     Dates: start: 20200221, end: 20200304

REACTIONS (13)
  - Central nervous system neoplasm [Fatal]
  - Subdural haematoma [Not Recovered/Not Resolved]
  - Contusion [Recovered/Resolved]
  - Fall [Recovered/Resolved]
  - Disorientation [Recovered/Resolved]
  - Condition aggravated [Recovered/Resolved]
  - Fall [Recovered/Resolved]
  - Restlessness [Recovered/Resolved]
  - Thrombocytopenia [Recovered/Resolved]
  - Vomiting [Recovered/Resolved]
  - Vomiting [Recovered/Resolved]
  - Pyrexia [Recovered/Resolved]
  - Vomiting [Recovered/Resolved]

NARRATIVE: CASE EVENT DATE: 20200318
